FAERS Safety Report 19293411 (Version 1)
Quarter: 2021Q2

REPORT INFORMATION
  Report Type: Spontaneous
  Country: US (occurrence: US)
  Receive Date: 20210523
  Receipt Date: 20210523
  Transmission Date: 20210717
  Serious: Yes (Other)
  Sender: FDA-Public Use
  Company Number: None

PATIENT
  Age: 34 Year
  Sex: Female
  Weight: 63 kg

DRUGS (3)
  1. CLONAZEPAM. [Suspect]
     Active Substance: CLONAZEPAM
     Indication: ANXIETY
     Dosage: ?          QUANTITY:1 TABLET(S);?
     Route: 048
  2. LEXAPRO [Concomitant]
     Active Substance: ESCITALOPRAM OXALATE
  3. TRILEPTAL [Concomitant]
     Active Substance: OXCARBAZEPINE

REACTIONS (5)
  - Drug dependence [None]
  - Withdrawal syndrome [None]
  - Anxiety [None]
  - Paranoia [None]
  - Depression [None]
